FAERS Safety Report 17799690 (Version 1)
Quarter: 2020Q2

REPORT INFORMATION
  Report Type: Spontaneous
  Country: DE (occurrence: DE)
  Receive Date: 20200518
  Receipt Date: 20200518
  Transmission Date: 20200714
  Serious: Yes (Hospitalization)
  Sender: FDA-Public Use
  Company Number: DE-MYLANLABS-2020M1048241

PATIENT
  Age: 78 Year
  Sex: Female

DRUGS (15)
  1. MAGNESIOCARD [Concomitant]
     Active Substance: MAGNESIUM ASPARTATE HYDROCHLORIDE
     Dosage: UNK UNK, QD (1-0-0-0, PULVER)
  2. FOLSAEURE [Concomitant]
     Active Substance: FOLIC ACID
     Dosage: 5 MILLIGRAM, QD (5 MG, 0-1-0-0)
  3. KALINOR RETARD P [Concomitant]
     Active Substance: POTASSIUM CHLORIDE
     Dosage: 600 MILLIGRAM, QD (600 MG, 1-0-0-0, KAPSELN)
  4. METAMIZOL                          /06276701/ [Concomitant]
     Active Substance: METAMIZOLE
     Dosage: 500 MILLIGRAM (500 MG, BEDARF)
  5. PREDNISOLON                        /00016201/ [Concomitant]
     Active Substance: PREDNISOLONE
     Dosage: 0.5 MILLIGRAM, QD (1 MG, 0.5-0-0-0)
  6. RISPERIDONE. [Suspect]
     Active Substance: RISPERIDONE
     Indication: PRODUCT USED FOR UNKNOWN INDICATION
     Dosage: 0.5 MILLIGRAM, QD (0.5 MG, 0-0-0-1)
  7. HYDROXYCHLOROQUINE [Concomitant]
     Active Substance: HYDROXYCHLOROQUINE
     Dosage: 200 MILLIGRAM, QD (200 MG, 0-0-1-0)
  8. PHENPROCOUMON [Concomitant]
     Active Substance: PHENPROCOUMON
     Dosage: 3 MILLIGRAM
  9. COLECALCIFEROL [Concomitant]
     Active Substance: CHOLECALCIFEROL
     Dosage: 20000 IU, (1XPRO WOCHE FREITAGS)
  10. TORASEMIDE [Suspect]
     Active Substance: TORSEMIDE
     Indication: PRODUCT USED FOR UNKNOWN INDICATION
     Dosage: 10 MILLIGRAM, QD (10 MG, 1-0-0-0)
  11. BISOPROLOL [Concomitant]
     Active Substance: BISOPROLOL
     Dosage: 2.5 MILLIGRAM, QD (2.5 MG, 1-0-0-0)
  12. RISEDRONIC ACID [Concomitant]
     Active Substance: RISEDRONIC ACID
     Dosage: 35 MILLIGRAM, (1XPRO WOCHE FREITAGS)
  13. BENSERAZIDE W/LEVODOPA [Concomitant]
     Active Substance: BENSERAZIDE\LEVODOPA
     Dosage: UNK, TID (25, 100 MG, 1-1-1-0)
  14. LEVOTHYROXINE SODIUM. [Concomitant]
     Active Substance: LEVOTHYROXINE SODIUM
     Dosage: 0.1 MILLIGRAM, QD (0.1 MG, 1-0-0-0)
  15. NOVODIGAL (.BETA.-ACETYLDIGOXIN) [Concomitant]
     Active Substance: .BETA.-ACETYLDIGOXIN
     Dosage: 0.1 MILLIGRAM, QD (0.1 MG, 1-0-0-0)

REACTIONS (9)
  - Apathy [Unknown]
  - Fall [Unknown]
  - Somnolence [Unknown]
  - Psychomotor retardation [Unknown]
  - Muscular weakness [Unknown]
  - Blood pressure increased [Unknown]
  - Head discomfort [Unknown]
  - Dehydration [Unknown]
  - Body temperature increased [Unknown]
